FAERS Safety Report 7721858-4 (Version None)
Quarter: 2011Q3

REPORT INFORMATION
  Report Type: 
  Country: None (occurrence: None)
  Receive Date: 20110831
  Receipt Date: 20110829
  Transmission Date: 20111222
  Serious: Yes (Other)
  Sender: FDA-Public Use
  Company Number: IT-BRISTOL-MYERS SQUIBB COMPANY-16015158

PATIENT
  Age: 70 Year
  Sex: Female

DRUGS (1)
  1. CARBOPLATIN [Suspect]
     Indication: OVARIAN EPITHELIAL CANCER
     Route: 042
     Dates: start: 20100420, end: 20101116

REACTIONS (5)
  - DYSPNOEA [None]
  - THROMBOCYTOPENIA [None]
  - ANAEMIA [None]
  - NEUTROPENIA [None]
  - OEDEMA PERIPHERAL [None]
